FAERS Safety Report 6239911-3 (Version None)
Quarter: 2009Q2

REPORT INFORMATION
  Report Type: 
  Country: None (occurrence: None)
  Receive Date: 20090618
  Receipt Date: 20090618
  Transmission Date: 20091009
  Serious: Yes (Life-Threatening, Hospitalization)
  Sender: FDA-Public Use
  Company Number: None

PATIENT
  Age: 49 Year
  Sex: Male
  Weight: 90.7194 kg

DRUGS (1)
  1. ZICAM NASL SPRAY GEL ZINCUM GLUCONICUM 2X ZICAM LLC SUBSIDIARY MATRIXX [Suspect]
     Indication: NASOPHARYNGITIS
     Dosage: TWO SPRAYS PER NOSTRIL TWICE A DAY ENDOSINUSIAL
     Route: 006
     Dates: start: 20040101, end: 20060101

REACTIONS (7)
  - AESTHESIONEUROBLASTOMA [None]
  - ANOSMIA [None]
  - INJURY [None]
  - MALIGNANT NEOPLASM PROGRESSION [None]
  - METASTASES TO CENTRAL NERVOUS SYSTEM [None]
  - NERVOUS SYSTEM DISORDER [None]
  - SINUS DISORDER [None]
